FAERS Safety Report 8247139 (Version 7)
Quarter: 2013Q1

REPORT INFORMATION
  Report Type: Report from Study
  Country: US (occurrence: US)
  Receive Date: 20111116
  Receipt Date: 20130225
  Transmission Date: 20140127
  Serious: Yes (Hospitalization)
  Sender: FDA-Public Use
  Company Number: US-ROCHE-GNE322690

PATIENT
  Age: 0 Year
  Sex: Male
  Weight: 4.09 kg

DRUGS (6)
  1. OMALIZUMAB [Suspect]
     Indication: ASTHMA
     Dosage: UNK
     Route: 064
     Dates: start: 200810
  2. HYDROCORTISONE CREAM [Concomitant]
     Indication: DERMATITIS DIAPER
  3. LOTRIMIN (CLOTRIMAZOLE) [Concomitant]
     Indication: DERMATITIS DIAPER
  4. MUPIROCIN [Concomitant]
     Indication: DERMATITIS DIAPER
  5. MOTRIN [Concomitant]
     Indication: PYREXIA
  6. TYLENOL [Concomitant]
     Indication: PYREXIA

REACTIONS (9)
  - Jaundice [Recovered/Resolved]
  - Dermatitis diaper [Unknown]
  - Gastrooesophageal reflux disease [Unknown]
  - Maternal exposure timing unspecified [Unknown]
  - Allergy to arthropod bite [Unknown]
  - Rhinorrhoea [Unknown]
  - Nasopharyngitis [Unknown]
  - Cough [Unknown]
  - Diarrhoea [Unknown]
